FAERS Safety Report 5506253-0 (Version None)
Quarter: 2007Q4

REPORT INFORMATION
  Report Type: 
  Country: None (occurrence: None)
  Receive Date: 20071101
  Receipt Date: 20071101
  Transmission Date: 20080405
  Serious: Yes (Hospitalization)
  Sender: FDA-Public Use
  Company Number: None

PATIENT
  Sex: Female

DRUGS (11)
  1. GEMCITABINE [Suspect]
     Indication: PANCREATIC CARCINOMA
     Dosage: 1390MG IV
     Route: 042
     Dates: start: 20071015
  2. GEMCITABINE [Suspect]
     Indication: PANCREATIC CARCINOMA
     Dosage: 1390MG IV
     Route: 042
     Dates: start: 20071016
  3. OXALIPLATIN [Suspect]
     Indication: PANCREATIC CARCINOMA
     Dosage: 139MG IV
     Route: 042
     Dates: start: 20071015
  4. OXALIPLATIN [Suspect]
     Indication: PANCREATIC CARCINOMA
     Dosage: 139MG IV
     Route: 042
     Dates: start: 20071016
  5. CETUXIMAB [Suspect]
     Indication: PANCREATIC CARCINOMA
     Dosage: 348MG IV
     Route: 042
     Dates: start: 20071022
  6. NIFEDIPINE [Concomitant]
  7. ENALAPRIL MALEATE [Concomitant]
  8. OXYCONTIN [Concomitant]
  9. PERCOCET [Concomitant]
  10. MARINOL [Concomitant]
  11. PANCREASE [Concomitant]

REACTIONS (2)
  - ABDOMINAL PAIN UPPER [None]
  - BACK PAIN [None]
